FAERS Safety Report 23566455 (Version 2)
Quarter: 2025Q1

REPORT INFORMATION
  Report Type: Report from Study
  Country: US (occurrence: US)
  Receive Date: 20240226
  Receipt Date: 20250214
  Transmission Date: 20250408
  Serious: No
  Sender: AMNEAL
  Company Number: US-AMNEAL PHARMACEUTICALS-2023-AMRX-00128

PATIENT
  Sex: Female

DRUGS (3)
  1. CARBIDOPA\LEVODOPA [Suspect]
     Active Substance: CARBIDOPA\LEVODOPA
     Indication: Product used for unknown indication
     Route: 065
  2. CARBIDOPA\LEVODOPA [Suspect]
     Active Substance: CARBIDOPA\LEVODOPA
     Dosage: 48.75MG-195MG, 3 CAPSULES, 3 /DAY3 CAPSULES, 3 /DAY
     Route: 048
  3. CARBIDOPA\LEVODOPA [Suspect]
     Active Substance: CARBIDOPA\LEVODOPA
     Dosage: 23 .75MG-95MG, 3 CAPSULES, 4 /DAY
     Route: 048
     Dates: start: 20240826

REACTIONS (5)
  - COVID-19 [Unknown]
  - Feeling abnormal [Unknown]
  - Tremor [Unknown]
  - Condition aggravated [Unknown]
  - Dyskinesia [Unknown]
